FAERS Safety Report 10086814 (Version 7)
Quarter: 2014Q2

REPORT INFORMATION
  Report Type: Spontaneous
  Country: US (occurrence: US)
  Receive Date: 20140418
  Receipt Date: 20140630
  Transmission Date: 20141212
  Serious: Yes (Death, Hospitalization)
  Sender: FDA-Public Use
  Company Number: US-GLAXOSMITHKLINE-A1069823A

PATIENT
  Age: 22 Year
  Sex: Female

DRUGS (1)
  1. FLOLAN [Suspect]
     Indication: CONNECTIVE TISSUE DISORDER
     Dosage: 12NGKM CONTINUOUS
     Route: 042
     Dates: start: 20140408

REACTIONS (6)
  - Investigation [Not Recovered/Not Resolved]
  - Nausea [Not Recovered/Not Resolved]
  - Abdominal pain upper [Not Recovered/Not Resolved]
  - Vomiting [Not Recovered/Not Resolved]
  - Pericardial effusion [Not Recovered/Not Resolved]
  - Death [Fatal]
